FAERS Safety Report 21552061 (Version 16)
Quarter: 2023Q1

REPORT INFORMATION
  Report Type: Report from Study
  Country: DE (occurrence: None)
  Receive Date: 20221104
  Receipt Date: 20230221
  Transmission Date: 20230418
  Serious: Yes (Hospitalization)
  Sender: FDA-Public Use
  Company Number: DE-Eisai Medical Research-EC-2022-125899

PATIENT
  Age: 58 Year
  Sex: Male
  Weight: 124.5 kg

DRUGS (17)
  1. LENVATINIB [Suspect]
     Active Substance: LENVATINIB
     Indication: Clear cell renal cell carcinoma
     Route: 048
     Dates: start: 20220907, end: 20221011
  2. LENVATINIB [Suspect]
     Active Substance: LENVATINIB
     Dosage: STARTING DOSE: 20 MG, FLUCTUATED DOSAGE
     Route: 048
     Dates: start: 20221028
  3. PEMBROLIZUMAB [Suspect]
     Active Substance: PEMBROLIZUMAB
     Indication: Clear cell renal cell carcinoma
     Route: 041
     Dates: start: 20220907, end: 20220907
  4. PEMBROLIZUMAB [Suspect]
     Active Substance: PEMBROLIZUMAB
     Route: 041
     Dates: start: 20221027
  5. BELZUTIFAN [Suspect]
     Active Substance: BELZUTIFAN
     Indication: Clear cell renal cell carcinoma
     Route: 048
     Dates: start: 20220907
  6. PANTOPRAZOLE [Concomitant]
     Active Substance: PANTOPRAZOLE
     Dates: start: 202207
  7. HYGROTON [Concomitant]
     Active Substance: CHLORTHALIDONE
     Dates: start: 20210101, end: 20221115
  8. HYDROCHLOROTHIAZIDE [Concomitant]
     Active Substance: HYDROCHLOROTHIAZIDE
     Dates: start: 20200701, end: 20221028
  9. RAMIPRIL [Concomitant]
     Active Substance: RAMIPRIL
     Dates: start: 20220922, end: 20230116
  10. AMLODIPINE [Concomitant]
     Active Substance: AMLODIPINE BESYLATE
     Dates: start: 20220922, end: 20221009
  11. TILIDINE HYDROCHLORIDE [Concomitant]
     Active Substance: TILIDINE HYDROCHLORIDE
     Dates: start: 20220920, end: 20220929
  12. PALEXIA [Concomitant]
     Active Substance: TAPENTADOL HYDROCHLORIDE
     Dates: start: 20220930, end: 20221009
  13. AMITRIPTYLINE HYDROCHLORIDE [Concomitant]
     Active Substance: AMITRIPTYLINE HYDROCHLORIDE
     Dates: start: 20220930
  14. NALOXONE HYDROCHLORIDE [Concomitant]
     Active Substance: NALOXONE HYDROCHLORIDE
     Dates: start: 20220920, end: 20220929
  15. ENOXAPARIN SODIUM [Concomitant]
     Active Substance: ENOXAPARIN SODIUM
     Route: 058
     Dates: start: 20221007, end: 20221030
  16. LACTULOSE [Concomitant]
     Active Substance: LACTULOSE
     Dates: start: 20220915, end: 20221116
  17. DIPYRONE [Concomitant]
     Active Substance: DIPYRONE
     Dates: start: 20220915, end: 20230110

REACTIONS (3)
  - Wound infection [Recovered/Resolved]
  - Back pain [Recovered/Resolved]
  - Anaemia [Not Recovered/Not Resolved]

NARRATIVE: CASE EVENT DATE: 20221008
